FAERS Safety Report 25574145 (Version 1)
Quarter: 2025Q3

REPORT INFORMATION
  Report Type: Spontaneous
  Country: EU (occurrence: EU)
  Receive Date: 20250717
  Receipt Date: 20250717
  Transmission Date: 20251021
  Serious: Yes (Hospitalization, Other)
  Sender: ELI LILLY AND COMPANY
  Company Number: EU-ELI_LILLY_AND_COMPANY-NL202507009450

PATIENT
  Age: 27 Year
  Sex: Female
  Weight: 36.8 kg

DRUGS (2)
  1. FLUOXETINE HYDROCHLORIDE [Suspect]
     Active Substance: FLUOXETINE HYDROCHLORIDE
     Indication: Major depression
     Dosage: 40 MG, DAILY
     Route: 065
  2. METHYLPHENIDATE [Suspect]
     Active Substance: METHYLPHENIDATE
     Indication: Attention deficit hyperactivity disorder
     Dosage: 30 MG, DAILY
     Route: 065

REACTIONS (6)
  - Anorexia nervosa [Recovering/Resolving]
  - Underweight [Unknown]
  - Bradycardia [Unknown]
  - Electrolyte imbalance [Unknown]
  - Hypoglycaemia [Unknown]
  - Mania [Recovered/Resolved]
